FAERS Safety Report 16177380 (Version 1)
Quarter: 2019Q2

REPORT INFORMATION
  Report Type: Spontaneous
  Country: RO (occurrence: RO)
  Receive Date: 20190410
  Receipt Date: 20190410
  Transmission Date: 20190711
  Serious: Yes (Hospitalization)
  Sender: FDA-Public Use
  Company Number: RO-ASTRAZENECA-2019SE53996

PATIENT
  Age: 66 Year
  Sex: Female

DRUGS (8)
  1. ASA [Concomitant]
     Active Substance: ASPIRIN
     Indication: ANGINA UNSTABLE
  2. ASA [Concomitant]
     Active Substance: ASPIRIN
     Indication: STENT PLACEMENT
  3. BETALOC [Concomitant]
     Active Substance: METOPROLOL TARTRATE
  4. SORTIS [Concomitant]
     Active Substance: ATORVASTATIN
  5. TRITACE [Concomitant]
     Active Substance: RAMIPRIL
  6. BRILIQUE [Suspect]
     Active Substance: TICAGRELOR
     Indication: ANGINA UNSTABLE
     Route: 048
  7. BRILIQUE [Suspect]
     Active Substance: TICAGRELOR
     Indication: STENT PLACEMENT
     Route: 048
  8. SPIRONOLACTONE. [Concomitant]
     Active Substance: SPIRONOLACTONE

REACTIONS (2)
  - Chest pain [Unknown]
  - Fatigue [Unknown]
